FAERS Safety Report 7301318-5 (Version None)
Quarter: 2011Q1

REPORT INFORMATION
  Report Type: 
  Country: None (occurrence: None)
  Receive Date: 20110218
  Receipt Date: 20110216
  Transmission Date: 20110831
  Serious: Yes (Other)
  Sender: FDA-Public Use
  Company Number: AU-PFIZER INC-2011034843

PATIENT
  Age: 70 Year
  Sex: Female

DRUGS (13)
  1. CARTIA XT [Concomitant]
  2. SPIRIVA [Concomitant]
  3. ATECARD [Concomitant]
  4. CHAMPIX [Suspect]
     Dosage: UNK
     Dates: start: 20110204
  5. LIPITOR [Concomitant]
  6. CENTRUM [Concomitant]
  7. MOGADON [Concomitant]
  8. FISH OIL [Concomitant]
  9. LIPEX [Concomitant]
  10. SYMBICORT [Concomitant]
  11. MOVICOL [Concomitant]
  12. FEFOL [Concomitant]
  13. SUSTAGEN [Concomitant]

REACTIONS (5)
  - FALL [None]
  - BALANCE DISORDER [None]
  - VOMITING [None]
  - APTYALISM [None]
  - DRY MOUTH [None]
